FAERS Safety Report 8986991 (Version 1)
Quarter: 2012Q4

REPORT INFORMATION
  Report Type: 
  Country: GB (occurrence: GB)
  Receive Date: 20121226
  Receipt Date: 20121226
  Transmission Date: 20130627
  Serious: Yes (Other)
  Sender: FDA-Public Use
  Company Number: PHHY2012GB118180

PATIENT
  Age: 72 Year
  Sex: Male

DRUGS (10)
  1. ATORVASTATIN [Suspect]
     Dosage: 10 mg, QD, At night. Started }1 month ago
     Dates: end: 20121210
  2. LISINOPRIL [Concomitant]
     Dosage: 40 mg, QD
  3. AMLODIPINE [Concomitant]
     Dosage: 10 mg, UNK
  4. AMLODIPINE [Concomitant]
     Dosage: 5 mg, UNK
  5. AMLODIPINE [Concomitant]
     Dosage: 2 mg, UNK
  6. DOXAZOSIN [Concomitant]
  7. ATENOLOL [Concomitant]
     Indication: HEART RATE INCREASED
  8. INSULIN GLARGINE [Concomitant]
     Dosage: 17 U, UNK
  9. RANITIDINE [Concomitant]
     Indication: ABDOMINAL DISCOMFORT
  10. NOVORAPID [Concomitant]
     Dosage: 23 U (4 units in the morning before breakfast, 8 units at lunch time and 11 units in the evening)

REACTIONS (6)
  - Dyspnoea [Recovered/Resolved]
  - Feeling drunk [Recovered/Resolved]
  - Asthenia [Recovered/Resolved]
  - Myalgia [Recovered/Resolved]
  - Arthralgia [Recovered/Resolved]
  - Blood glucose increased [Recovered/Resolved]
